FAERS Safety Report 7472591-8 (Version None)
Quarter: 2011Q2

REPORT INFORMATION
  Report Type: 
  Country: None (occurrence: None)
  Receive Date: 20110502
  Receipt Date: 20110415
  Transmission Date: 20111010
  Serious: Yes (Other)
  Sender: FDA-Public Use
  Company Number: 031675

PATIENT
  Sex: Female

DRUGS (1)
  1. LACOSAMIDE [Suspect]
     Indication: EPILEPSY
     Dates: start: 20090101

REACTIONS (6)
  - HYPOAESTHESIA [None]
  - PALPITATIONS [None]
  - DRY EYE [None]
  - INTERVERTEBRAL DISC PROTRUSION [None]
  - HYPOAESTHESIA ORAL [None]
  - TINNITUS [None]
